FAERS Safety Report 9427315 (Version 1)
Quarter: 2013Q3

REPORT INFORMATION
  Report Type: Report from Study
  Country: US (occurrence: US)
  Receive Date: 20130730
  Receipt Date: 20130730
  Transmission Date: 20140515
  Serious: No
  Sender: FDA-Public Use
  Company Number: US-ABBOTT-12P-163-0980435-00

PATIENT
  Sex: Female

DRUGS (6)
  1. NIASPAN (COATED) [Suspect]
     Indication: BLOOD CHOLESTEROL INCREASED
     Dates: start: 201101
  2. NIASPAN (COATED) [Suspect]
     Dosage: IN MORNING
  3. ASPIRIN [Concomitant]
     Indication: PRODUCT USED FOR UNKNOWN INDICATION
  4. NEXIUM [Concomitant]
     Indication: PRODUCT USED FOR UNKNOWN INDICATION
  5. HORMONE REPLACEMENT ESTROGEN AND TESTOSTERONE [Concomitant]
     Indication: HORMONE REPLACEMENT THERAPY
  6. PROZAC [Concomitant]
     Indication: PRODUCT USED FOR UNKNOWN INDICATION

REACTIONS (4)
  - Hot flush [Unknown]
  - Flushing [Unknown]
  - Skin burning sensation [Unknown]
  - Pruritus generalised [Unknown]
